FAERS Safety Report 5857827-9 (Version None)
Quarter: 2008Q3

REPORT INFORMATION
  Report Type: 
  Country: None (occurrence: None)
  Receive Date: 20080826
  Receipt Date: 20080820
  Transmission Date: 20090109
  Serious: Yes (Hospitalization, Disabling)
  Sender: FDA-Public Use
  Company Number: CA-AVENTIS-200817892GDDC

PATIENT
  Age: 64 Year
  Sex: Male

DRUGS (7)
  1. LANTUS [Suspect]
     Route: 058
  2. AUTOPEN INSULIN INJECTION PEN [Suspect]
  3. NORVASC [Concomitant]
     Dosage: DOSE QUANTITY: 1.5
     Route: 048
  4. LYRICA [Concomitant]
     Route: 048
  5. NOVO-ACEBUTOLOL [Concomitant]
     Route: 048
  6. ASAPHEN [Concomitant]
     Route: 048
  7. AVALIDE [Concomitant]
     Route: 048

REACTIONS (1)
  - PAIN IN EXTREMITY [None]
